FAERS Safety Report 24450074 (Version 1)
Quarter: 2024Q4

REPORT INFORMATION
  Report Type: Spontaneous
  Country: DE (occurrence: DE)
  Receive Date: 20241017
  Receipt Date: 20241017
  Transmission Date: 20250114
  Serious: No
  Sender: AMPHASTAR
  Company Number: DE-Amphastar Pharmaceuticals, Inc.-2163209

PATIENT

DRUGS (1)
  1. BAQSIMI [Suspect]
     Active Substance: GLUCAGON
     Indication: Hypoglycaemia
     Dates: start: 2024

REACTIONS (1)
  - No adverse event [Unknown]
